FAERS Safety Report 8790973 (Version 1)
Quarter: 2012Q4

REPORT INFORMATION
  Report Type: Spontaneous
  Country: US (occurrence: None)
  Receive Date: 20120907
  Receipt Date: 20120907
  Transmission Date: 20130627
  Serious: Yes (Other)
  Sender: FDA-Public Use
  Company Number: 54973 AE #988

PATIENT
  Age: 56 Year
  Sex: Male
  Weight: 154.22 kg

DRUGS (11)
  1. HYLAND^S RESTFUL LEGS [Suspect]
     Dosage: upto30tabs/dayX2-3Month
  2. MULTIVITAMINS [Concomitant]
  3. FISH OIL [Concomitant]
  4. CALCIUM MAGNESIUM [Concomitant]
  5. B12 [Concomitant]
  6. HYDROCODONE [Concomitant]
  7. LISINOPRIL [Concomitant]
  8. TOPIOL [Concomitant]
  9. MOBIC [Concomitant]
  10. LASIX [Concomitant]
  11. POTASSIUM [Concomitant]

REACTIONS (2)
  - Nephrolithiasis [None]
  - Blood pressure increased [None]
